FAERS Safety Report 8548132-0 (Version None)
Quarter: 2012Q3

REPORT INFORMATION
  Report Type: 
  Country: None (occurrence: None)
  Receive Date: 20120730
  Receipt Date: 20120718
  Transmission Date: 20120928
  Serious: Yes (Hospitalization)
  Sender: FDA-Public Use
  Company Number: US-BIOGENIDEC-2012BI009215

PATIENT
  Age: 43 Year
  Sex: Male

DRUGS (12)
  1. ASPIRIN [Concomitant]
  2. LISINOPRIL [Concomitant]
  3. GLIPIZIDE [Concomitant]
  4. CYMBALTA [Concomitant]
  5. METOPROLOL TARTRATE [Concomitant]
  6. BACLOFEN [Concomitant]
  7. PLAVIX [Concomitant]
  8. TYSABRI [Suspect]
     Indication: MULTIPLE SCLEROSIS
     Route: 042
     Dates: start: 20110302
  9. TRAZODONE HYDROCHLORIDE [Concomitant]
  10. METFORMIN HYDROCHLORIDE [Concomitant]
  11. GEMFIBROZIL [Concomitant]
  12. BUPROPION HCL [Concomitant]

REACTIONS (2)
  - ACUTE CORONARY SYNDROME [None]
  - MULTIPLE SCLEROSIS RELAPSE [None]
